FAERS Safety Report 17895092 (Version 3)
Quarter: 2023Q2

REPORT INFORMATION
  Report Type: Spontaneous
  Country: US (occurrence: US)
  Receive Date: 20200615
  Receipt Date: 20230629
  Transmission Date: 20230721
  Serious: No
  Sender: FDA-Public Use
  Company Number: US-PFIZER INC-2020229364

PATIENT
  Age: 30 Year
  Sex: Female

DRUGS (4)
  1. DOCETAXEL [Suspect]
     Active Substance: DOCETAXEL
     Indication: Breast cancer female
     Dosage: UNK, CYCLIC (FOUR CYCLES, EVERY 2 WEEKS)
     Dates: start: 20141117, end: 20150119
  2. DOCETAXEL [Suspect]
     Active Substance: DOCETAXEL
     Indication: Breast cancer female
     Dosage: UNK, CYCLIC (FOUR CYCLES, EVERY 2 WEEKS)
     Dates: start: 20141117, end: 20150119
  3. TAXOTERE [Concomitant]
     Active Substance: DOCETAXEL
     Indication: Chemotherapy
     Dosage: UNK, CYCLIC (FOUR CYCLES)
  4. NEOSAR [Concomitant]
     Active Substance: CYCLOPHOSPHAMIDE
     Indication: Chemotherapy
     Dosage: UNK, CYCLIC (FOUR CYCLES)

REACTIONS (5)
  - Alopecia [Not Recovered/Not Resolved]
  - Hair colour changes [Not Recovered/Not Resolved]
  - Hair disorder [Not Recovered/Not Resolved]
  - Hair texture abnormal [Not Recovered/Not Resolved]
  - Madarosis [Not Recovered/Not Resolved]

NARRATIVE: CASE EVENT DATE: 20150620
